FAERS Safety Report 13953911 (Version 2)
Quarter: 2017Q3

REPORT INFORMATION
  Report Type: Spontaneous
  Country: GB (occurrence: GB)
  Receive Date: 20170911
  Receipt Date: 20170920
  Transmission Date: 20171128
  Serious: Yes (Hospitalization, Other)
  Sender: FDA-Public Use
  Company Number: GB-ROCHE-1985524

PATIENT
  Sex: Female

DRUGS (2)
  1. ROACTEMRA [Suspect]
     Active Substance: TOCILIZUMAB
     Indication: RHEUMATOID ARTHRITIS
     Route: 058
     Dates: end: 20170824
  2. ASPIRIN. [Concomitant]
     Active Substance: ASPIRIN

REACTIONS (8)
  - Chest pain [Unknown]
  - Malaise [Recovered/Resolved]
  - Dyspnoea [Unknown]
  - Vertigo [Unknown]
  - Vomiting [Unknown]
  - Nausea [Not Recovered/Not Resolved]
  - Nystagmus [Not Recovered/Not Resolved]
  - Dizziness [Not Recovered/Not Resolved]

NARRATIVE: CASE EVENT DATE: 20170824
